FAERS Safety Report 13663254 (Version 1)
Quarter: 2017Q2

REPORT INFORMATION
  Report Type: Spontaneous
  Country: US (occurrence: US)
  Receive Date: 20170619
  Receipt Date: 20170619
  Transmission Date: 20170830
  Serious: No
  Sender: FDA-Public Use
  Company Number: US-TEVA-760351ACC

PATIENT
  Sex: Female

DRUGS (2)
  1. MECLIZINE [Concomitant]
     Active Substance: MECLIZINE HYDROCHLORIDE
  2. MUCUS EXTENDED RELEASE [Suspect]
     Active Substance: GUAIFENESIN
     Indication: RESPIRATORY TRACT CONGESTION
     Dosage: 1200 MILLIGRAM DAILY;
     Route: 048
     Dates: start: 20170405, end: 20170406

REACTIONS (2)
  - Inappropriate schedule of drug administration [Unknown]
  - Lymphadenopathy [Not Recovered/Not Resolved]
